FAERS Safety Report 6840822-0 (Version None)
Quarter: 2010Q3

REPORT INFORMATION
  Report Type: 
  Country: None (occurrence: None)
  Receive Date: 20100714
  Receipt Date: 20060923
  Transmission Date: 20110219
  Serious: No
  Sender: FDA-Public Use
  Company Number: US-PFIZER INC-2006116055

PATIENT
  Sex: Male
  Weight: 84.82 kg

DRUGS (5)
  1. CHANTIX [Suspect]
     Indication: SMOKING CESSATION THERAPY
     Dates: start: 20060921, end: 20060922
  2. LIPITOR [Concomitant]
  3. TEGRETOL [Concomitant]
  4. NAVANE [Concomitant]
  5. ALL OTHER THERAPEUTIC PRODUCTS [Concomitant]

REACTIONS (2)
  - ANXIETY [None]
  - DIZZINESS [None]
